FAERS Safety Report 9036383 (Version 1)
Quarter: 2013Q1

REPORT INFORMATION
  Report Type: Spontaneous
  Country: US (occurrence: None)
  Receive Date: 20130123
  Receipt Date: 20130123
  Transmission Date: 20140127
  Serious: Yes (Disabling, Other)
  Sender: FDA-Public Use
  Company Number: None

PATIENT
  Age: 71 Year
  Sex: Female
  Weight: 77.11 kg

DRUGS (4)
  1. ZOMETA [Suspect]
     Indication: BONE DISORDER
     Dates: start: 20071026, end: 20101019
  2. ZOMETA [Suspect]
     Indication: NEOPLASM MALIGNANT
     Dates: start: 20071026, end: 20101019
  3. XGEVA [Suspect]
     Indication: BONE DISORDER
     Dates: start: 20110216, end: 20120619
  4. XGEVA [Suspect]
     Indication: NEOPLASM MALIGNANT
     Dates: start: 20110216, end: 20120619

REACTIONS (3)
  - Stress fracture [None]
  - Femur fracture [None]
  - Renal failure [None]
